FAERS Safety Report 5755878-6 (Version None)
Quarter: 2008Q2

REPORT INFORMATION
  Report Type: 
  Country: None (occurrence: None)
  Receive Date: 20080602
  Receipt Date: 20080522
  Transmission Date: 20081010
  Serious: Yes (Hospitalization)
  Sender: FDA-Public Use
  Company Number: US-JNJFOC-20080201443

PATIENT
  Age: 42 Year
  Sex: Female
  Weight: 102.06 kg

DRUGS (7)
  1. TOPAMAX [Suspect]
     Indication: MENTAL DISORDER
     Route: 048
  2. TOPAMAX [Suspect]
     Indication: EATING DISORDER
     Route: 048
  3. TOPAMAX [Suspect]
     Indication: MIGRAINE PROPHYLAXIS
     Dosage: 25 MG 3-4 TABLETS DAILY
     Route: 048
  4. CYMBALTA [Concomitant]
     Indication: DEPRESSION
     Route: 048
  5. GEODON [Concomitant]
     Indication: DEPRESSION
     Route: 048
  6. TRAMADOL HCL [Concomitant]
     Indication: PAIN
     Route: 048
  7. LIDODERM [Concomitant]
     Indication: PAIN

REACTIONS (4)
  - INCREASED UPPER AIRWAY SECRETION [None]
  - NEUROPATHY PERIPHERAL [None]
  - PAIN IN EXTREMITY [None]
  - RESTLESS LEGS SYNDROME [None]
